FAERS Safety Report 13941762 (Version 1)
Quarter: 2017Q3

REPORT INFORMATION
  Report Type: Spontaneous
  Country: US (occurrence: US)
  Receive Date: 20170906
  Receipt Date: 20170906
  Transmission Date: 20171127
  Serious: No
  Sender: FDA-Public Use
  Company Number: PHHY2017US131166

PATIENT
  Age: 81 Year
  Sex: Female

DRUGS (2)
  1. VOLTAREN [Suspect]
     Active Substance: DICLOFENAC SODIUM
     Dosage: UNK
     Route: 065
  2. VOLTAREN [Suspect]
     Active Substance: DICLOFENAC SODIUM
     Indication: ARTHRITIS
     Dosage: 3 TO 4 TIMES A DAY
     Route: 065

REACTIONS (4)
  - Product use in unapproved indication [Unknown]
  - Drug administered at inappropriate site [Unknown]
  - Pain [Unknown]
  - Inappropriate schedule of drug administration [Unknown]
